FAERS Safety Report 5736034-4 (Version None)
Quarter: 2008Q2

REPORT INFORMATION
  Report Type: 
  Country: None (occurrence: None)
  Receive Date: 20080506
  Receipt Date: 20070907
  Transmission Date: 20081010
  Serious: Yes (Death)
  Sender: FDA-Public Use
  Company Number: T200701069

PATIENT

DRUGS (1)
  1. METHADOSE [Suspect]

REACTIONS (1)
  - DEATH [None]
